FAERS Safety Report 5969235-0 (Version None)
Quarter: 2008Q4

REPORT INFORMATION
  Report Type: 
  Country: None (occurrence: None)
  Receive Date: 20081126
  Receipt Date: 20080822
  Transmission Date: 20090506
  Serious: No
  Sender: FDA-Public Use
  Company Number: US-ABBOTT-08P-163-0472217-00

PATIENT
  Sex: Male

DRUGS (1)
  1. SIMCOR [Suspect]
     Indication: DRUG USE FOR UNKNOWN INDICATION
     Dosage: ONE DAILY IN THE AM
     Dates: start: 20080815

REACTIONS (4)
  - BACK PAIN [None]
  - HEADACHE [None]
  - MYALGIA [None]
  - NAUSEA [None]
